FAERS Safety Report 18321090 (Version 1)
Quarter: 2020Q3

REPORT INFORMATION
  Report Type: Spontaneous
  Country: DE (occurrence: DE)
  Receive Date: 20200929
  Receipt Date: 20200929
  Transmission Date: 20201103
  Serious: Yes (Death, Hospitalization)
  Sender: FDA-Public Use
  Company Number: DE-TEVA-2020-DE-1831800

PATIENT
  Age: 87 Year
  Sex: Male
  Weight: 75 kg

DRUGS (10)
  1. BISOPROLOL [Suspect]
     Active Substance: BISOPROLOL
     Dosage: 20 MILLIGRAM DAILY; 1?0?1?0
     Route: 048
  2. TORASEMID [Concomitant]
     Active Substance: TORSEMIDE
     Dosage: 2 DOSAGE FORMS DAILY; 100 MG, 2?0?0?0
     Route: 048
  3. NALOXON/TILIDIN [Suspect]
     Active Substance: NALOXONE HYDROCHLORIDE\TILIDINE HYDROCHLORIDE
     Dosage: 2 DOSAGE FORMS DAILY; 4|50 MG, 1?0?1?0
     Route: 048
  4. HYDROCORTISON [Concomitant]
     Active Substance: HYDROCORTISONE
     Dosage: 10 MILLIGRAM DAILY; 1?0?1?0
     Route: 061
  5. COLECALCIFEROL (VITAMIN D) [Concomitant]
     Dosage: THURSDAY
     Route: 048
  6. SPIRONOLACTON [Suspect]
     Active Substance: SPIRONOLACTONE
     Dosage: 50 MILLIGRAM DAILY;  0?0?1?0
     Route: 048
  7. APIXABAN [Concomitant]
     Active Substance: APIXABAN
     Dosage: 10 MILLIGRAM DAILY; 1?0?1?0
     Route: 048
  8. FOLSAURE [Concomitant]
     Active Substance: FOLIC ACID
     Dosage: 5 MILLIGRAM DAILY; 1?0?0?0
     Route: 048
  9. CANDESARTAN. [Concomitant]
     Active Substance: CANDESARTAN
     Dosage: 8 MILLIGRAM DAILY; 1?0?0?0
     Route: 048
  10. FENISTIL 1MG [Concomitant]
     Dosage: 1 MILLIGRAM DAILY;  0?0?1?0
     Route: 048

REACTIONS (6)
  - Oedema peripheral [Unknown]
  - Musculoskeletal pain [Unknown]
  - Delirium [Unknown]
  - Fall [Unknown]
  - Wound [Unknown]
  - Fracture [Unknown]

NARRATIVE: CASE EVENT DATE: 201912
